FAERS Safety Report 5598748-9 (Version None)
Quarter: 2008Q1

REPORT INFORMATION
  Report Type: 
  Country: None (occurrence: None)
  Receive Date: 20080122
  Receipt Date: 20080108
  Transmission Date: 20080703
  Serious: Yes (Life-Threatening, Hospitalization)
  Sender: FDA-Public Use
  Company Number: GB-BAUSCH-2008BL000062

PATIENT
  Age: 66 Year
  Sex: Female
  Weight: 60 kg

DRUGS (10)
  1. PREDNISOLONE [Suspect]
     Indication: RHEUMATOID ARTHRITIS
     Route: 048
     Dates: start: 20071106
  2. NAPROXEN [Suspect]
     Indication: RHEUMATOID ARTHRITIS
     Route: 048
     Dates: end: 20071126
  3. CALCIUM CARBONATE [Concomitant]
     Indication: OSTEOPOROSIS PROPHYLAXIS
     Route: 048
     Dates: end: 20071127
  4. CO-CODAMOL [Concomitant]
     Indication: RHEUMATOID ARTHRITIS
     Route: 048
  5. DIAZEPAM [Concomitant]
     Indication: AGORAPHOBIA
     Route: 048
  6. FERROUS FUMARATE [Concomitant]
     Indication: ANAEMIA
     Route: 048
  7. FOLIC ACID [Concomitant]
     Indication: ANAEMIA
     Route: 048
  8. HYDROXOCOBALAMIN [Concomitant]
     Indication: ANAEMIA
     Route: 058
  9. RANITIDINE [Concomitant]
     Indication: GASTROINTESTINAL DISORDER
     Route: 048
     Dates: end: 20071127
  10. SULFASALAZINE [Concomitant]
     Indication: RHEUMATOID ARTHRITIS
     Route: 048

REACTIONS (1)
  - DUODENAL ULCER PERFORATION [None]
